FAERS Safety Report 5037786-1 (Version None)
Quarter: 2006Q2

REPORT INFORMATION
  Report Type: 
  Country: None (occurrence: None)
  Receive Date: 20060601
  Receipt Date: 20060601
  Transmission Date: 20061013
  Serious: No
  Sender: FDA-Public Use
  Company Number: 2006PV008070

PATIENT
  Age: 52 Year
  Sex: Female
  Weight: 89.4947 kg

DRUGS (5)
  1. BYETTA [Suspect]
     Indication: DIABETES MELLITUS NON-INSULIN-DEPENDENT
     Dosage: SEE IMAGE
     Route: 058
     Dates: start: 20060101, end: 20060223
  2. BYETTA [Suspect]
     Indication: DIABETES MELLITUS NON-INSULIN-DEPENDENT
     Dosage: SEE IMAGE
     Route: 058
     Dates: start: 20060224
  3. BYETTA [Suspect]
  4. GLUCOTROL XR [Concomitant]
  5. AVANDIA [Concomitant]

REACTIONS (6)
  - DECREASED APPETITE [None]
  - ERUCTATION [None]
  - FLATULENCE [None]
  - INJECTION SITE IRRITATION [None]
  - NAUSEA [None]
  - WEIGHT DECREASED [None]
